FAERS Safety Report 5705616-8 (Version None)
Quarter: 2008Q2

REPORT INFORMATION
  Report Type: 
  Country: None (occurrence: None)
  Receive Date: 20080411
  Receipt Date: 20080325
  Transmission Date: 20081010
  Serious: Yes (Other)
  Sender: FDA-Public Use
  Company Number: 2008-0432

PATIENT
  Age: 69 Year
  Sex: Female

DRUGS (1)
  1. SOMATULINE AUTOGEL 90MG (LANREOTIDE ACETATE) (LANREOTIDE ACETATE) [Suspect]
     Dosage: (90 MG,) SUBCUTANEOUS
     Route: 058
     Dates: start: 20040101

REACTIONS (2)
  - INJECTION SITE NECROSIS [None]
  - INJECTION SITE NODULE [None]
